FAERS Safety Report 7952868-X (Version None)
Quarter: 2011Q4

REPORT INFORMATION
  Report Type: 
  Country: None (occurrence: None)
  Receive Date: 20111201
  Receipt Date: 20111122
  Transmission Date: 20120403
  Serious: Yes (Other)
  Sender: FDA-Public Use
  Company Number: US-BAYER-2011-066933

PATIENT
  Age: 23 Year
  Sex: Female
  Weight: 68.027 kg

DRUGS (4)
  1. CETIRIZINE HCL [Concomitant]
     Dosage: 10 MG, UNK
  2. YAZ [Suspect]
     Indication: PREMENSTRUAL SYNDROME
  3. LEVOXYL [Concomitant]
     Dosage: 50 MCG/24HR, UNK
  4. YAZ [Suspect]
     Indication: CONTRACEPTION
     Dosage: UNK
     Dates: start: 20080101, end: 20090101

REACTIONS (10)
  - INJURY [None]
  - HYPERHIDROSIS [None]
  - GALLBLADDER DISORDER [None]
  - ANXIETY [None]
  - EMOTIONAL DISTRESS [None]
  - CHOLECYSTITIS CHRONIC [None]
  - GENERAL PHYSICAL HEALTH DETERIORATION [None]
  - PAIN [None]
  - ABDOMINAL PAIN [None]
  - DYSPEPSIA [None]
